FAERS Safety Report 9306188 (Version 2)
Quarter: 2015Q2

REPORT INFORMATION
  Report Type: Spontaneous
  Country: FR (occurrence: FR)
  Receive Date: 20130523
  Receipt Date: 20150409
  Transmission Date: 20150821
  Serious: Yes (Hospitalization)
  Sender: FDA-Public Use
  Company Number: FR-GLAXOSMITHKLINE-B0752233A

PATIENT
  Sex: Male

DRUGS (9)
  1. STALEVO [Concomitant]
     Active Substance: CARBIDOPA\ENTACAPONE\LEVODOPA
  2. ATARAX [Concomitant]
     Active Substance: HYDROXYZINE\HYDROXYZINE HYDROCHLORIDE
  3. REQUIP [Suspect]
     Active Substance: ROPINIROLE HYDROCHLORIDE
     Indication: PARKINSON^S DISEASE
     Route: 048
     Dates: start: 200004, end: 200801
  4. TRIVASTAL [Concomitant]
     Active Substance: PIRIBEDIL
     Indication: PARKINSON^S DISEASE
     Route: 065
  5. LEXOMIL [Concomitant]
     Active Substance: BROMAZEPAM
  6. ARTANE [Concomitant]
     Active Substance: TRIHEXYPHENIDYL HYDROCHLORIDE
     Indication: PARKINSON^S DISEASE
     Route: 065
  7. MOTILIUM [Concomitant]
     Active Substance: DOMPERIDONE
     Route: 065
  8. SINEMET [Concomitant]
     Active Substance: CARBIDOPA\LEVODOPA
  9. EFFEXOR [Concomitant]
     Active Substance: VENLAFAXINE HYDROCHLORIDE
     Route: 065
     Dates: end: 2007

REACTIONS (14)
  - Insomnia [Unknown]
  - Compulsive sexual behaviour [Unknown]
  - Abnormal behaviour [Unknown]
  - Orthostatic hypotension [Unknown]
  - Theft [Unknown]
  - Pathological gambling [Unknown]
  - Bulimia nervosa [Recovering/Resolving]
  - Substance-induced psychotic disorder [Unknown]
  - Personality change [Unknown]
  - Incoherent [Unknown]
  - Impulsive behaviour [Unknown]
  - Mental disorder [Unknown]
  - Somnolence [Unknown]
  - Impulse-control disorder [Unknown]

NARRATIVE: CASE EVENT DATE: 2000
